FAERS Safety Report 24248402 (Version 2)
Quarter: 2024Q3

REPORT INFORMATION
  Report Type: Spontaneous
  Country: JP (occurrence: JP)
  Receive Date: 20240826
  Receipt Date: 20240904
  Transmission Date: 20241016
  Serious: Yes (Death)
  Sender: BAUSCH AND LOMB
  Company Number: JP-BAUSCH-BL-2024-012786

PATIENT
  Sex: Male

DRUGS (1)
  1. TARGRETIN [Suspect]
     Active Substance: BEXAROTENE
     Indication: Cutaneous T-cell lymphoma
     Route: 048

REACTIONS (1)
  - Malignant neoplasm progression [Fatal]
